FAERS Safety Report 7184451 (Version 6)
Quarter: 2014Q2

REPORT INFORMATION
  Report Type: Spontaneous
  Country: US (occurrence: US)
  Receive Date: 20091123
  Receipt Date: 20140408
  Transmission Date: 20141212
  Serious: Yes (Hospitalization)
  Sender: FDA-Public Use
  Company Number: US-ALEXION-A200900979

PATIENT
  Age: 35 Year
  Sex: Female

DRUGS (4)
  1. SOLIRIS [Suspect]
     Indication: PAROXYSMAL NOCTURNAL HAEMOGLOBINURIA
     Dosage: 600 MG, QW
     Route: 042
     Dates: start: 20070628
  2. SOLIRIS [Suspect]
     Dosage: 900 MG, Q2W
     Route: 042
  3. METHOTREXATE [Concomitant]
     Indication: ARTHRALGIA
     Dosage: UNK
     Route: 048
     Dates: start: 2009
  4. PREDNISONE [Concomitant]
     Indication: ARTHRALGIA
     Dosage: UNK
     Route: 048
     Dates: start: 2009

REACTIONS (10)
  - Pain [Not Recovered/Not Resolved]
  - Polyarthritis [Not Recovered/Not Resolved]
  - Embolism [Unknown]
  - Hepatomegaly [Unknown]
  - Hepatic function abnormal [Unknown]
  - Haemolysis [Recovering/Resolving]
  - Ocular icterus [Unknown]
  - Antinuclear antibody positive [Unknown]
  - Rheumatoid factor positive [Unknown]
  - Jugular vein distension [Unknown]
